FAERS Safety Report 23601080 (Version 1)
Quarter: 2024Q1

REPORT INFORMATION
  Report Type: Spontaneous
  Country: US (occurrence: None)
  Receive Date: 20240305
  Receipt Date: 20240305
  Transmission Date: 20240410
  Serious: No
  Sender: FDA-Public Use
  Company Number: None

PATIENT
  Age: 46 Year
  Sex: Male

DRUGS (1)
  1. LENALIDOMIDE [Suspect]
     Active Substance: LENALIDOMIDE
     Indication: Myelodysplastic syndrome
     Dosage: 10MG QOD ORAL
     Route: 048
     Dates: start: 20230331

REACTIONS (7)
  - Pneumonia influenzal [None]
  - Intentional dose omission [None]
  - Viral infection [None]
  - Metabolic acidosis [None]
  - Lactic acidosis [None]
  - Chest pain [None]
  - Abdominal pain [None]

NARRATIVE: CASE EVENT DATE: 20240226
